FAERS Safety Report 18099136 (Version 1)
Quarter: 2020Q3

REPORT INFORMATION
  Report Type: Spontaneous
  Country: US (occurrence: US)
  Receive Date: 20200731
  Receipt Date: 20200731
  Transmission Date: 20201103
  Serious: Yes (Hospitalization)
  Sender: FDA-Public Use
  Company Number: US-SCIEGEN-2020SCILIT00151

PATIENT
  Age: 65 Year
  Sex: Male

DRUGS (8)
  1. SERTRALINE HYDROCHLORIDE TABLETS [Suspect]
     Active Substance: SERTRALINE HYDROCHLORIDE
     Indication: DEPRESSION
     Route: 065
  2. VALPROIC ACID. [Suspect]
     Active Substance: VALPROIC ACID
     Indication: PRODUCT USED FOR UNKNOWN INDICATION
     Route: 065
  3. LAMOTRIGINE. [Suspect]
     Active Substance: LAMOTRIGINE
     Dosage: DOSE INCREASED TO 200 MG
     Route: 065
  4. LAMOTRIGINE. [Suspect]
     Active Substance: LAMOTRIGINE
     Dosage: REDUCED EVENTUALLY TO 75MG TWICE A DAY
     Route: 065
  5. LAMOTRIGINE. [Suspect]
     Active Substance: LAMOTRIGINE
     Dosage: REDUCED TO 150 MG
     Route: 065
  6. LAMOTRIGINE. [Suspect]
     Active Substance: LAMOTRIGINE
     Indication: PRODUCT USED FOR UNKNOWN INDICATION
     Route: 065
  7. WARFARIN [Suspect]
     Active Substance: WARFARIN
     Indication: PRODUCT USED FOR UNKNOWN INDICATION
     Route: 065
  8. VITAMIN K [Interacting]
     Active Substance: PHYTONADIONE
     Indication: ANTICOAGULATION DRUG LEVEL ABOVE THERAPEUTIC
     Route: 048

REACTIONS (7)
  - Anticoagulation drug level above therapeutic [Recovered/Resolved]
  - Drug interaction [Unknown]
  - Toxicity to various agents [Recovering/Resolving]
  - Delirium [Recovering/Resolving]
  - Transaminases increased [Recovering/Resolving]
  - Catatonia [Recovered/Resolved]
  - Paratonia [Recovering/Resolving]
